FAERS Safety Report 19437675 (Version 4)
Quarter: 2021Q2

REPORT INFORMATION
  Report Type: Spontaneous
  Country: US (occurrence: US)
  Receive Date: 20210618
  Receipt Date: 20210623
  Transmission Date: 20210717
  Serious: No
  Sender: FDA-Public Use
  Company Number: US-PFIZER INC-2021577313

PATIENT
  Age: 65 Year
  Sex: Female
  Weight: 86.18 kg

DRUGS (4)
  1. AMLODIPINE BESILATE [Interacting]
     Active Substance: AMLODIPINE BESYLATE
     Indication: HYPERTENSION
     Dosage: 10 MG
  2. DILTIAZEM. [Concomitant]
     Active Substance: DILTIAZEM
     Indication: HYPERTENSION
     Dosage: 30 MG, 2X/DAY
     Dates: start: 2019
  3. PREMARIN [Suspect]
     Active Substance: ESTROGENS, CONJUGATED
     Indication: POSTMENOPAUSE
     Dosage: 1.0 (APPLICATOR MEASUREMENTS)
     Dates: start: 2018, end: 202104
  4. PREMARIN [Interacting]
     Active Substance: ESTROGENS, CONJUGATED
     Dosage: 0.5 (APPLICATOR MEASUREMENTS)
     Dates: start: 202104

REACTIONS (4)
  - Intentional product misuse [Unknown]
  - Drug interaction [Unknown]
  - Pollakiuria [Unknown]
  - Therapeutic response unexpected [Unknown]

NARRATIVE: CASE EVENT DATE: 2018
